FAERS Safety Report 23153230 (Version 4)
Quarter: 2024Q1

REPORT INFORMATION
  Report Type: Spontaneous
  Country: US (occurrence: US)
  Receive Date: 20231107
  Receipt Date: 20240325
  Transmission Date: 20240410
  Serious: No
  Sender: FDA-Public Use
  Company Number: US-Eisai Medical Research-EC-2023-147383

PATIENT
  Age: 82 Year
  Sex: Male
  Weight: 74.4 kg

DRUGS (1)
  1. LEQEMBI [Suspect]
     Active Substance: LECANEMAB-IRMB
     Indication: Dementia Alzheimer^s type
     Dosage: DOSE UNKNOWN
     Route: 042
     Dates: start: 20230608, end: 20231221

REACTIONS (4)
  - Ocular hyperaemia [Not Recovered/Not Resolved]
  - Ocular discomfort [Recovering/Resolving]
  - Eye pruritus [Recovering/Resolving]
  - Superficial siderosis of central nervous system [Unknown]

NARRATIVE: CASE EVENT DATE: 20230101
